FAERS Safety Report 15156518 (Version 1)
Quarter: 2018Q3

REPORT INFORMATION
  Report Type: Spontaneous
  Country: US (occurrence: US)
  Receive Date: 20180717
  Receipt Date: 20180717
  Transmission Date: 20181010
  Serious: No
  Sender: FDA-Public Use
  Company Number: US-BIOGEN-2018BI00608365

PATIENT
  Age: 61 Year
  Sex: Female

DRUGS (1)
  1. TECFIDERA [Suspect]
     Active Substance: DIMETHYL FUMARATE
     Indication: PRODUCT USED FOR UNKNOWN INDICATION
     Dosage: MAINTENANCE DOSE
     Route: 048

REACTIONS (6)
  - Weight increased [Unknown]
  - Swelling [Unknown]
  - Peripheral swelling [Unknown]
  - Drug dose omission [Unknown]
  - Abdominal distension [Unknown]
  - Swelling face [Unknown]

NARRATIVE: CASE EVENT DATE: 20180612
